FAERS Safety Report 6754938-0 (Version None)
Quarter: 2010Q2

REPORT INFORMATION
  Report Type: 
  Country: None (occurrence: None)
  Receive Date: 20100528
  Receipt Date: 20100515
  Transmission Date: 20101027
  Serious: Yes (Other)
  Sender: FDA-Public Use
  Company Number: 2010AP001026

PATIENT
  Age: 31 Year
  Sex: Male

DRUGS (1)
  1. CARBAMAZEPINE [Suspect]
     Indication: PARTIAL SEIZURES
     Dosage: 200 MG, BID

REACTIONS (2)
  - DYSTONIA [None]
  - IDIOSYNCRATIC DRUG REACTION [None]
